FAERS Safety Report 7979539-8 (Version None)
Quarter: 2011Q4

REPORT INFORMATION
  Report Type: 
  Country: None (occurrence: None)
  Receive Date: 20111214
  Receipt Date: 20111201
  Transmission Date: 20120403
  Serious: Yes (Hospitalization, Other)
  Sender: FDA-Public Use
  Company Number: MX-SANOFI-AVENTIS-2011SA081000

PATIENT
  Age: 51 Year
  Sex: Female
  Weight: 60 kg

DRUGS (2)
  1. LANTUS [Suspect]
     Route: 058
     Dates: start: 20060101
  2. SHORANT [Suspect]
     Dosage: DOSE:8 IU IN MORNING AND 10 IU AT NIGHT
     Route: 058
     Dates: start: 20060101

REACTIONS (4)
  - SUBDURAL HAEMATOMA [None]
  - HYPERGLYCAEMIA [None]
  - LOSS OF CONSCIOUSNESS [None]
  - HEADACHE [None]
